FAERS Safety Report 13014278 (Version 1)
Quarter: 2016Q4

REPORT INFORMATION
  Report Type: Report from Study
  Country: None (occurrence: FR)
  Receive Date: 20161209
  Receipt Date: 20161209
  Transmission Date: 20170207
  Serious: Yes (Death, Hospitalization)
  Sender: FDA-Public Use
  Company Number: FR-ABBVIE-16P-056-1803118-00

PATIENT
  Age: 81 Year
  Sex: Female
  Weight: 42 kg

DRUGS (7)
  1. LANZOR [Concomitant]
     Active Substance: LANSOPRAZOLE
     Indication: GASTRIC DISORDER
     Dates: start: 20121115
  2. BURINEX [Concomitant]
     Active Substance: BUMETANIDE
     Indication: CARDIAC FAILURE
     Dates: start: 201502, end: 20150516
  3. VIEKIRAX [Suspect]
     Active Substance: OMBITASVIR\PARITAPREVIR\RITONAVIR
     Indication: HEPATITIS C
     Route: 048
     Dates: start: 20150507, end: 20150519
  4. LOPRESSOR [Concomitant]
     Active Substance: METOPROLOL TARTRATE
     Indication: TACHYCARDIA
     Dosage: 1/2 PER DAY
     Dates: start: 20061128, end: 20150526
  5. EXVIERA [Suspect]
     Active Substance: DASABUVIR
     Indication: HEPATITIS C
     Dosage: 250
     Route: 048
     Dates: start: 20150507, end: 20150519
  6. LEVOTHYROX [Concomitant]
     Active Substance: LEVOTHYROXINE
     Indication: HYPOTHYROIDISM
     Dosage: 1/2 TABLET OF 25 UG
     Dates: start: 20061128, end: 20150526
  7. COPEGUS [Concomitant]
     Active Substance: RIBAVIRIN
     Indication: HEPATITIS C
     Dates: start: 20150507, end: 20150519

REACTIONS (5)
  - Renal failure [Fatal]
  - Urinary tract infection [Fatal]
  - Hepatic failure [Fatal]
  - Abdominal pain [Fatal]
  - Jaundice [Fatal]

NARRATIVE: CASE EVENT DATE: 20150514
